FAERS Safety Report 17794723 (Version 2)
Quarter: 2020Q2

REPORT INFORMATION
  Report Type: Spontaneous
  Country: IN (occurrence: IN)
  Receive Date: 20200515
  Receipt Date: 20200522
  Transmission Date: 20200714
  Serious: Yes (Other)
  Sender: FDA-Public Use
  Company Number: IN-ASTRAZENECA-2020SE62199

PATIENT
  Age: 48 Year
  Sex: Male

DRUGS (4)
  1. QTERN [Suspect]
     Active Substance: DAPAGLIFLOZIN\SAXAGLIPTIN HYDROCHLORIDE
     Indication: TYPE 2 DIABETES MELLITUS
     Dosage: DAILY
     Route: 048
     Dates: start: 202003
  2. STEROID [Concomitant]
     Active Substance: UNSPECIFIED INGREDIENT
  3. MULTIVITAMIN [Concomitant]
     Active Substance: VITAMINS
  4. PROTON PUMP INHIBITORS [Concomitant]
     Active Substance: UNSPECIFIED INGREDIENT

REACTIONS (2)
  - Psoriasis [Not Recovered/Not Resolved]
  - Skin reaction [Unknown]

NARRATIVE: CASE EVENT DATE: 202005
